FAERS Safety Report 8248631-5 (Version None)
Quarter: 2012Q1

REPORT INFORMATION
  Report Type: 
  Country: None (occurrence: None)
  Receive Date: 20120331
  Receipt Date: 20120319
  Transmission Date: 20120608
  Serious: Yes (Hospitalization, Disabling, Other)
  Sender: FDA-Public Use
  Company Number: US-MYLANLABS-2012S1006450

PATIENT
  Sex: Female
  Weight: 50.8 kg

DRUGS (44)
  1. DIGOXIN [Suspect]
     Indication: CARDIAC FAILURE CONGESTIVE
     Dates: start: 20021007, end: 20090626
  2. ISOSORBIDE DINITRATE [Concomitant]
  3. LIPITOR [Concomitant]
  4. MILK OF MAGNESIA TAB [Concomitant]
  5. NEXIUM [Concomitant]
  6. ROCEPHIN [Concomitant]
  7. ZANTAC [Concomitant]
  8. ACIPHEX [Concomitant]
  9. ASPIRIN [Concomitant]
  10. BEXTRA /01400702/ [Concomitant]
  11. NITROGLYCERIN [Concomitant]
  12. PRILOSEC [Concomitant]
  13. ZINC OXIDE [Concomitant]
     Route: 061
  14. CALCIUM CARBONATE [Concomitant]
  15. DIPHENOXYLATE [Concomitant]
  16. TRAMADOL HCL [Concomitant]
  17. CARTIA XT [Concomitant]
  18. COUMADIN [Concomitant]
  19. TESSALON [Concomitant]
  20. GEN-BUDESONIDE AQ NASAL SPRAY 100 MCG/MET. DOSE [Concomitant]
  21. OS-CAL 500 + D [Concomitant]
  22. POTASSIUM CHLORIDE [Concomitant]
  23. ALBUTEROL [Concomitant]
  24. ATROVENT [Concomitant]
  25. CARDIZEM [Concomitant]
  26. DIOVAN [Concomitant]
  27. GLUCOSAMINE [Concomitant]
  28. GUAIFENESIN [Concomitant]
  29. PLAVIX [Concomitant]
  30. STOOL SOFTENER [Concomitant]
  31. ULTRAM [Concomitant]
  32. HEPARIN [Concomitant]
  33. KLOR-CON [Concomitant]
  34. LOMOTIL [Concomitant]
  35. PROTONIX [Concomitant]
  36. SYNTHROID [Concomitant]
  37. TOPROL-XL [Concomitant]
  38. DIGOXIN [Suspect]
     Indication: ATRIAL FIBRILLATION
     Dates: start: 20021007, end: 20090626
  39. MULTI-VITAMINS [Concomitant]
  40. CODEINE SULFATE [Concomitant]
  41. DARVOCET-N 100 [Concomitant]
     Dosage: 100/650MG
  42. LASIX [Concomitant]
  43. MULTI-VITAMINS [Concomitant]
  44. PRAVACHOL [Concomitant]

REACTIONS (70)
  - LUNG NEOPLASM MALIGNANT [None]
  - DEMENTIA [None]
  - CARDIOMYOPATHY [None]
  - NOCTURIA [None]
  - HYPERLIPIDAEMIA [None]
  - OSTEOPOROSIS [None]
  - SKELETAL INJURY [None]
  - WALKING DISABILITY [None]
  - PULMONARY HYPERTENSION [None]
  - CARDIAC FAILURE CONGESTIVE [None]
  - HYPERTENSION [None]
  - THYROID DISORDER [None]
  - EAR PAIN [None]
  - WEIGHT INCREASED [None]
  - ASTHENIA [None]
  - MUSCULOSKELETAL PAIN [None]
  - RHINORRHOEA [None]
  - MALAISE [None]
  - BALANCE DISORDER [None]
  - CONTUSION [None]
  - CONSTIPATION [None]
  - OXYGEN SATURATION DECREASED [None]
  - NAUSEA [None]
  - SICK SINUS SYNDROME [None]
  - DYSURIA [None]
  - DYSPNOEA [None]
  - PERIPHERAL VASCULAR DISORDER [None]
  - DECREASED APPETITE [None]
  - CHEST DISCOMFORT [None]
  - CHEST PAIN [None]
  - SOMNOLENCE [None]
  - RIB FRACTURE [None]
  - VOMITING [None]
  - HYPOTENSION [None]
  - INTERMITTENT CLAUDICATION [None]
  - ARTERIOSCLEROSIS CORONARY ARTERY [None]
  - CEREBROVASCULAR ACCIDENT [None]
  - HYPERCHOLESTEROLAEMIA [None]
  - MUSCULOSKELETAL CHEST PAIN [None]
  - WEIGHT DECREASED [None]
  - SKIN ULCER [None]
  - PAIN IN EXTREMITY [None]
  - ATRIAL FIBRILLATION [None]
  - AORTIC OCCLUSION [None]
  - CHRONIC OBSTRUCTIVE PULMONARY DISEASE [None]
  - FRACTURED SACRUM [None]
  - BACK PAIN [None]
  - DEHYDRATION [None]
  - ANAEMIA [None]
  - PULMONARY EMBOLISM [None]
  - CORONARY ARTERY DISEASE [None]
  - HYPOXIA [None]
  - DEEP VEIN THROMBOSIS [None]
  - DEMENTIA ALZHEIMER'S TYPE [None]
  - COUGH [None]
  - CAROTID BRUIT [None]
  - FATIGUE [None]
  - SPINAL COLUMN INJURY [None]
  - PAIN [None]
  - HEART RATE INCREASED [None]
  - HYPERHIDROSIS [None]
  - DIARRHOEA [None]
  - EMBOLISM VENOUS [None]
  - PNEUMONIA [None]
  - PARAESTHESIA [None]
  - FALL [None]
  - LIMB INJURY [None]
  - FRACTURED COCCYX [None]
  - OSTEOARTHRITIS [None]
  - URINARY TRACT INFECTION [None]
